FAERS Safety Report 4344960-6 (Version None)
Quarter: 2004Q2

REPORT INFORMATION
  Report Type: 
  Country: None (occurrence: None)
  Receive Date: 20040420
  Receipt Date: 20040406
  Transmission Date: 20050107
  Serious: Yes (Hospitalization, Other)
  Sender: FDA-Public Use
  Company Number: USA-2003-0008821

PATIENT
  Age: 40 Year
  Sex: Female

DRUGS (20)
  1. OXYCONTIN [Suspect]
     Indication: PAIN
     Dosage: SEE IMAGE
     Route: 048
  2. PREDNISONE [Concomitant]
  3. LASIX [Concomitant]
  4. XANAX [Concomitant]
  5. POTASSIUM (POTASSIUM) [Concomitant]
  6. HYDROXYZINE (HYDROXYZINE) TABLET [Concomitant]
  7. CALTRATE (CALCIUM CARBONATE) [Concomitant]
  8. PRILOSEC [Concomitant]
  9. COMPAZINE [Concomitant]
  10. ALBUTEROL [Concomitant]
  11. METHOTREXATE [Concomitant]
  12. MAGNESIUM OXIDE (MAGNESIUM OXIDE) TABLET [Concomitant]
  13. PROTONIX [Concomitant]
  14. ZANTAC [Concomitant]
  15. PREVACID [Concomitant]
  16. SYNTHROID [Concomitant]
  17. TYLENOL (CAPLET) [Concomitant]
  18. PHENERGAN [Concomitant]
  19. SINEMET [Concomitant]
  20. XANAX [Concomitant]

REACTIONS (43)
  - ABDOMINAL PAIN [None]
  - ARTHRALGIA [None]
  - AXILLARY MASS [None]
  - BRONCHITIS [None]
  - CANDIDIASIS [None]
  - CHEST PAIN [None]
  - CONFUSIONAL STATE [None]
  - CONJUNCTIVITIS [None]
  - CONTUSION [None]
  - COUGH [None]
  - DEPRESSION [None]
  - DIARRHOEA [None]
  - DRUG DEPENDENCE [None]
  - DRUG EFFECT DECREASED [None]
  - DRUG TOLERANCE [None]
  - DRUG WITHDRAWAL SYNDROME [None]
  - DYSARTHRIA [None]
  - DYSPNOEA [None]
  - ERYTHEMA [None]
  - FALL [None]
  - GAIT DISTURBANCE [None]
  - GASTROENTERITIS [None]
  - HEADACHE [None]
  - HYPOAESTHESIA [None]
  - INSOMNIA [None]
  - IRRITABILITY [None]
  - JOINT SWELLING [None]
  - LOSS OF CONSCIOUSNESS [None]
  - NAUSEA [None]
  - NERVOUSNESS [None]
  - OEDEMA MOUTH [None]
  - OEDEMA PERIPHERAL [None]
  - PAIN [None]
  - PYREXIA [None]
  - RASH [None]
  - SWELLING [None]
  - SWELLING FACE [None]
  - SYSTEMIC LUPUS ERYTHEMATOSUS [None]
  - TREMOR [None]
  - URINE OUTPUT DECREASED [None]
  - VISION BLURRED [None]
  - VOMITING [None]
  - WEIGHT DECREASED [None]
